FAERS Safety Report 9820896 (Version 2)
Quarter: 2014Q1

REPORT INFORMATION
  Report Type: Report from Study
  Country: CA (occurrence: CA)
  Receive Date: 20140116
  Receipt Date: 20140219
  Transmission Date: 20141002
  Serious: Yes (Hospitalization, Other)
  Sender: FDA-Public Use
  Company Number: CA-ABBVIE-14P-028-1187906-00

PATIENT
  Age: 82 Year
  Sex: Male
  Weight: 65 kg

DRUGS (2)
  1. LUPRON DEPOT [Suspect]
     Indication: PROSTATE CANCER
     Route: 030
     Dates: start: 20121221
  2. DILTIAZEM [Suspect]
     Indication: PRODUCT USED FOR UNKNOWN INDICATION
     Dates: start: 2005, end: 20131122

REACTIONS (13)
  - Sinus bradycardia [Recovered/Resolved with Sequelae]
  - Malaise [Unknown]
  - Fatigue [Unknown]
  - Headache [Unknown]
  - General physical health deterioration [Unknown]
  - Bronchopneumonia [Recovered/Resolved with Sequelae]
  - Bronchiectasis [Recovered/Resolved with Sequelae]
  - Cholecystectomy [Unknown]
  - Asthenia [Unknown]
  - Decreased activity [Unknown]
  - Weight decreased [Unknown]
  - Diaphragmatic hernia [Unknown]
  - Diverticulum intestinal [Unknown]
